FAERS Safety Report 6627920-1 (Version None)
Quarter: 2010Q1

REPORT INFORMATION
  Report Type: 
  Country: None (occurrence: None)
  Receive Date: 20100311
  Receipt Date: 20090318
  Transmission Date: 20100710
  Serious: No
  Sender: FDA-Public Use
  Company Number: A0774101A

PATIENT
  Sex: Male

DRUGS (2)
  1. NICOTINE POLACRILEX [Suspect]
     Indication: DRUG USE FOR UNKNOWN INDICATION
     Route: 055
  2. NICOTROL [Concomitant]
     Route: 055

REACTIONS (2)
  - ADVERSE EVENT [None]
  - ASPIRATION [None]
